APPROVED DRUG PRODUCT: VERMOX
Active Ingredient: MEBENDAZOLE
Strength: 100MG **Federal Register determination that product was not discontinued or withdrawn for safety or effectiveness reasons**
Dosage Form/Route: TABLET, CHEWABLE;ORAL
Application: N017481 | Product #001
Applicant: JANSSEN PHARMACEUTICALS INC
Approved: Approved Prior to Jan 1, 1982 | RLD: Yes | RS: No | Type: DISCN